FAERS Safety Report 11240287 (Version 3)
Quarter: 2015Q3

REPORT INFORMATION
  Report Type: Report from Study
  Country: KR (occurrence: KR)
  Receive Date: 20150706
  Receipt Date: 20150813
  Transmission Date: 20151125
  Serious: Yes (Other)
  Sender: FDA-Public Use
  Company Number: KR-BAYER-2015-365817

PATIENT
  Age: 64 Year
  Sex: Male

DRUGS (2)
  1. NEXAVAR [Suspect]
     Active Substance: SORAFENIB
     Indication: HEPATOCELLULAR CARCINOMA
     Dosage: 400 MG, BID
     Route: 048
     Dates: start: 20150615, end: 20150622
  2. NEXAVAR [Suspect]
     Active Substance: SORAFENIB
     Indication: HEPATOCELLULAR CARCINOMA
     Dosage: 200 MG, BID
     Route: 048
     Dates: start: 20150626

REACTIONS (12)
  - Blister [Recovering/Resolving]
  - Abasia [None]
  - Pain in extremity [Recovering/Resolving]
  - Blister [None]
  - Pain in extremity [None]
  - Gingival pain [Not Recovered/Not Resolved]
  - Erythema [None]
  - Toothache [None]
  - Gingival bleeding [None]
  - Dental caries [None]
  - Therapy cessation [None]
  - Gingival swelling [Not Recovered/Not Resolved]

NARRATIVE: CASE EVENT DATE: 201506
